FAERS Safety Report 9024665 (Version 1)
Quarter: 2013Q1

REPORT INFORMATION
  Report Type: Report from Study
  Country: US (occurrence: US)
  Receive Date: 20130121
  Receipt Date: 20130121
  Transmission Date: 20140127
  Serious: Yes (Hospitalization)
  Sender: FDA-Public Use
  Company Number: US-MERCK-1301USA007073

PATIENT
  Age: 72 None
  Sex: Female
  Weight: 89.5 kg

DRUGS (4)
  1. SYLATRON [Suspect]
     Indication: METASTATIC NEOPLASM
     Dosage: 2 MICROGRAM PER KILOGRAM, Q3W
     Route: 058
     Dates: start: 20120919
  2. YERVOY [Suspect]
     Indication: METASTATIC MALIGNANT MELANOMA
     Dosage: 3 MG/KG, Q3W X4
     Route: 042
     Dates: start: 20120919, end: 20121221
  3. ONDANSETRON [Concomitant]
     Dosage: UNK
     Dates: start: 201209
  4. ATARAX (ALPRAZOLAM) [Concomitant]
     Dosage: UNK, PRN
     Dates: start: 201212

REACTIONS (1)
  - Cellulitis [Recovered/Resolved]
